FAERS Safety Report 8295839-9 (Version None)
Quarter: 2012Q2

REPORT INFORMATION
  Report Type: 
  Country: None (occurrence: None)
  Receive Date: 20120418
  Receipt Date: 20120404
  Transmission Date: 20120825
  Serious: Yes (Hospitalization)
  Sender: FDA-Public Use
  Company Number: US-ROCHE-1038379

PATIENT
  Age: 72 Year
  Sex: Female

DRUGS (1)
  1. RANIBIZUMAB [Suspect]
     Indication: MACULAR OEDEMA
     Dosage: LAST DOSE PRIOR TO SAE: 05/JAN/2012
     Route: 050
     Dates: start: 20080623

REACTIONS (1)
  - PNEUMONIA [None]
